FAERS Safety Report 15655374 (Version 4)
Quarter: 2019Q4

REPORT INFORMATION
  Report Type: Spontaneous
  Country: US (occurrence: US)
  Receive Date: 20181126
  Receipt Date: 20191121
  Transmission Date: 20200122
  Serious: No
  Sender: FDA-Public Use
  Company Number: US-BRISTOL-MYERS SQUIBB COMPANY-BMS-2018-110384

PATIENT
  Sex: Female

DRUGS (1)
  1. ORENCIA [Suspect]
     Active Substance: ABATACEPT
     Indication: MORPHOEA
     Dosage: 125 MG, QWK
     Route: 058
     Dates: start: 20181030

REACTIONS (5)
  - Intentional product use issue [Unknown]
  - Night sweats [Unknown]
  - Nasopharyngitis [Unknown]
  - Fatigue [Unknown]
  - Drug ineffective [Unknown]
